FAERS Safety Report 16679491 (Version 9)
Quarter: 2020Q1

REPORT INFORMATION
  Report Type: Report from Study
  Country: IE (occurrence: IE)
  Receive Date: 20190807
  Receipt Date: 20200331
  Transmission Date: 20200409
  Serious: Yes (Other)
  Sender: FDA-Public Use
  Company Number: PHHY2019IE176360

PATIENT
  Age: 62 Year
  Sex: Female

DRUGS (5)
  1. AFINITOR [Suspect]
     Active Substance: EVEROLIMUS
     Dosage: 10 MG, QD
     Route: 065
     Dates: start: 20190701
  2. AFINITOR [Suspect]
     Active Substance: EVEROLIMUS
     Dosage: UNK
     Route: 065
     Dates: start: 20191023, end: 20191104
  3. NEUROFEN [Concomitant]
     Active Substance: IBUPROFEN
     Indication: PAIN IN EXTREMITY
     Dosage: 400 MG, TID
     Route: 065
  4. AFINITOR [Suspect]
     Active Substance: EVEROLIMUS
     Dosage: 10 MG
     Route: 065
  5. AFINITOR [Suspect]
     Active Substance: EVEROLIMUS
     Indication: NEUROENDOCRINE TUMOUR OF THE LUNG
     Dosage: 10 MG
     Route: 065
     Dates: start: 20190107

REACTIONS (10)
  - Pain in extremity [Recovering/Resolving]
  - Rash papular [Recovering/Resolving]
  - Liver function test abnormal [Not Recovered/Not Resolved]
  - Metastases to spine [Not Recovered/Not Resolved]
  - Vitreous floaters [Not Recovered/Not Resolved]
  - Oropharyngeal pain [Recovered/Resolved]
  - Oral pain [Recovered/Resolved]
  - Mass [Not Recovered/Not Resolved]
  - Fatigue [Not Recovered/Not Resolved]
  - Throat irritation [Recovering/Resolving]

NARRATIVE: CASE EVENT DATE: 20190717
